FAERS Safety Report 12428099 (Version 2)
Quarter: 2016Q3

REPORT INFORMATION
  Report Type: Report from Study
  Country: MX (occurrence: MX)
  Receive Date: 20160602
  Receipt Date: 20160720
  Transmission Date: 20161109
  Serious: Yes (Hospitalization, Other)
  Sender: FDA-Public Use
  Company Number: PHHY2016MX045960

PATIENT
  Age: 30 Year
  Sex: Male

DRUGS (3)
  1. PAXIL [Concomitant]
     Active Substance: PAROXETINE HYDROCHLORIDE
     Dosage: 25 MG, UNK
     Route: 065
     Dates: start: 201605
  2. PAXIL [Concomitant]
     Active Substance: PAROXETINE HYDROCHLORIDE
     Indication: ANTIDEPRESSANT THERAPY
     Dosage: 12.5 MG, QD (1 OF 12.5 MG DAILY AT NIGHT)
     Route: 065
     Dates: start: 201602
  3. GILENYA [Suspect]
     Active Substance: FINGOLIMOD HYDROCHLORIDE
     Indication: MULTIPLE SCLEROSIS
     Dosage: 0.5 MG, QD
     Route: 048
     Dates: start: 201506, end: 20160328

REACTIONS (25)
  - Muscle spasticity [Unknown]
  - Fatigue [Unknown]
  - Incoherent [Recovering/Resolving]
  - Contusion [Recovering/Resolving]
  - Malaise [Recovered/Resolved]
  - Visual acuity reduced [Recovering/Resolving]
  - Abasia [Recovering/Resolving]
  - Headache [Recovered/Resolved]
  - Blood pressure decreased [Unknown]
  - Pain [Unknown]
  - Insomnia [Unknown]
  - Dry skin [Unknown]
  - Vomiting [Recovering/Resolving]
  - Skin discolouration [Recovering/Resolving]
  - Gingival pain [Unknown]
  - Scar [Recovered/Resolved]
  - Immunodeficiency [Unknown]
  - Multiple sclerosis relapse [Unknown]
  - Visual impairment [Unknown]
  - Constipation [Unknown]
  - Nausea [Recovering/Resolving]
  - Stomatitis [Unknown]
  - Asthenopia [Unknown]
  - Pyrexia [Recovering/Resolving]
  - Impaired healing [Recovering/Resolving]

NARRATIVE: CASE EVENT DATE: 201512
